FAERS Safety Report 10200761 (Version 1)
Quarter: 2014Q2

REPORT INFORMATION
  Report Type: Spontaneous
  Country: US (occurrence: US)
  Receive Date: 20140528
  Receipt Date: 20140528
  Transmission Date: 20141212
  Serious: Yes (Hospitalization, Other)
  Sender: FDA-Public Use
  Company Number: US-AMGEN-USASP2014038991

PATIENT
  Age: 58 Year
  Sex: Female

DRUGS (1)
  1. ENBREL [Suspect]
     Indication: PSORIASIS
     Dosage: 50 MG, QWK
     Route: 065
     Dates: start: 20120412, end: 20140414

REACTIONS (4)
  - Knee arthroplasty [Recovered/Resolved]
  - Amnesia [Not Recovered/Not Resolved]
  - Psoriasis [Not Recovered/Not Resolved]
  - Stress [Not Recovered/Not Resolved]
